FAERS Safety Report 12305539 (Version 6)
Quarter: 2016Q4

REPORT INFORMATION
  Report Type: Report from Study
  Country: US (occurrence: US)
  Receive Date: 20160426
  Receipt Date: 20161107
  Transmission Date: 20170207
  Serious: Yes (Hospitalization)
  Sender: FDA-Public Use
  Company Number: US-009507513-1604USA014945

PATIENT
  Age: 68 Year
  Sex: Female
  Weight: 100 kg

DRUGS (25)
  1. PRILOSEC [Concomitant]
     Active Substance: OMEPRAZOLE MAGNESIUM
     Indication: GASTROOESOPHAGEAL REFLUX DISEASE
     Dosage: TOTAL DAILY DOSE: 40 MG (20 MG, 2 IN 1 D)
     Route: 048
     Dates: start: 20151120
  2. ALEVE [Concomitant]
     Active Substance: NAPROXEN SODIUM
     Indication: ABDOMINAL PAIN
     Dosage: TOTAL DAILY DOSE: 220 MG, AS REQUIRED
     Route: 048
     Dates: start: 20151123
  3. LASIX [Concomitant]
     Active Substance: FUROSEMIDE
     Indication: SWELLING
     Dosage: DAILY DOSE: 40 MG, AS REQUIRED
     Route: 048
     Dates: start: 20151210
  4. VITAMINS (UNSPECIFIED) [Concomitant]
     Active Substance: VITAMINS
     Indication: NUTRITIONAL SUPPLEMENTATION
     Dosage: UNK, 1 IN 1 D
     Route: 048
     Dates: start: 20110101
  5. PERCOCET [Concomitant]
     Active Substance: ACETAMINOPHEN\OXYCODONE HYDROCHLORIDE
     Indication: ABDOMINAL PAIN
     Dosage: DAILY DOSE: 5/325 MG, AS REQUIRED
     Route: 048
     Dates: start: 20151130
  6. POTASSIUM GLUCONATE [Concomitant]
     Active Substance: POTASSIUM GLUCONATE
     Indication: HYPOKALAEMIA
     Dosage: DAILY DOSE: 595 MG, AS REQUIRED
     Route: 048
     Dates: start: 201401
  7. ASPIRIN. [Concomitant]
     Active Substance: ASPIRIN
     Indication: ANTICOAGULANT THERAPY
     Dosage: 325 MG, 1 IN 1 D
     Route: 048
     Dates: start: 201101
  8. BORTEZOMIB [Suspect]
     Active Substance: BORTEZOMIB
     Indication: PLASMA CELL MYELOMA
     Dosage: DAILY DOSE: DAYS 1, 4, 8 AND 11 (0.7 MG/M2), CYCLICAL
     Route: 058
     Dates: start: 20151109, end: 20160328
  9. BACTRIM [Concomitant]
     Active Substance: SULFAMETHOXAZOLE\TRIMETHOPRIM
     Indication: INFECTION PROPHYLAXIS
     Dosage: DAILY DOSE: MWF (800 MG, 3 IN 1 WK)
     Route: 048
     Dates: start: 20151109
  10. LASIX [Concomitant]
     Active Substance: FUROSEMIDE
     Indication: OEDEMA
     Dosage: DAILY DOSE: 20 MG, AS REQUIRED
     Route: 048
     Dates: start: 2014, end: 20151210
  11. GABAPENTIN. [Concomitant]
     Active Substance: GABAPENTIN
     Indication: NEUROPATHY PERIPHERAL
     Dosage: DAILY DOSE: 300 MG (100 MG, 3 IN 1 D)
     Route: 048
     Dates: start: 20160201
  12. VALSARTAN. [Concomitant]
     Active Substance: VALSARTAN
     Indication: HYPERTENSION
     Dosage: 80 MG, 1 IN 1 D
     Route: 048
     Dates: start: 201301
  13. VALACYCLOVIR HYDROCHLORIDE. [Concomitant]
     Active Substance: VALACYCLOVIR HYDROCHLORIDE
     Indication: INFECTION PROPHYLAXIS
  14. DEXAMETHASONE. [Suspect]
     Active Substance: DEXAMETHASONE
     Indication: PLASMA CELL MYELOMA
     Dosage: DAILY DOSE: DAYS 1, 2, 4, 5, 8, 9, 11 AND 12 (20 MG) CYCLICAL
     Route: 048
     Dates: start: 20151109, end: 20151211
  15. DEXAMETHASONE. [Suspect]
     Active Substance: DEXAMETHASONE
     Dosage: DAILY DOSE: DAYS 1, 2, 4, 5, 8, 9, 11 AND 12 (12 MG), CYCLICAL
     Route: 048
     Dates: start: 20160104, end: 20160401
  16. ABT-199 [Suspect]
     Active Substance: VENETOCLAX
     Indication: PLASMA CELL MYELOMA
     Dosage: 21 D CYCLE (1200 MG, 1 IN 1 D)
     Route: 048
     Dates: start: 20151109, end: 20160207
  17. ABT-199 [Suspect]
     Active Substance: VENETOCLAX
     Dosage: 800 MG, 1 IN 1 D
     Route: 048
     Dates: start: 20160208, end: 20160405
  18. ONDANSETRON [Concomitant]
     Active Substance: ONDANSETRON
     Indication: NAUSEA
     Dosage: DAILY DOSE: 8 MG, AS REQUIRED
     Route: 048
     Dates: start: 2012
  19. XANAX [Concomitant]
     Active Substance: ALPRAZOLAM
     Indication: ANXIETY
     Dosage: DAILY DOSE: 1 MG (0.5 MG, 2 IN 1 D), BID
     Route: 048
     Dates: start: 20100409
  20. AMBIEN [Concomitant]
     Active Substance: ZOLPIDEM TARTRATE
     Indication: SLEEP APNOEA SYNDROME
     Dosage: 10 MG, 1 IN 1 D
     Route: 048
     Dates: start: 201301
  21. LEXAPRO [Concomitant]
     Active Substance: ESCITALOPRAM OXALATE
     Indication: DEPRESSION
     Dosage: 20 MG, 1 IN 1 D
     Route: 048
     Dates: start: 201401
  22. VALACYCLOVIR HYDROCHLORIDE. [Concomitant]
     Active Substance: VALACYCLOVIR HYDROCHLORIDE
     Indication: PRURITUS
     Dosage: 500 MG, 1 IN 1 D
     Route: 048
     Dates: start: 20151112
  23. CALCIUM (UNSPECIFIED) (+) VITAMIN D (UNSPECIFIED) [Concomitant]
     Active Substance: CALCIUM CARBONATE\VITAMIN D
     Indication: PLASMA CELL MYELOMA
     Dosage: 600 MG, 1 IN 1 D
     Route: 048
     Dates: start: 20110101
  24. UBIDECARENONE [Concomitant]
     Active Substance: UBIDECARENONE
     Indication: CARDIOVASCULAR EVENT PROPHYLAXIS
     Dosage: 10 MG, 1 IN 1 D
     Route: 048
     Dates: start: 201201
  25. INSULIN DETEMIR [Concomitant]
     Active Substance: INSULIN DETEMIR
     Indication: DIABETES MELLITUS
     Dosage: 60 UNITS, 1 IN 1 D, QD
     Route: 058
     Dates: start: 20130402

REACTIONS (3)
  - Sepsis [Recovered/Resolved]
  - Pneumonia [Not Recovered/Not Resolved]
  - Hypotension [Not Recovered/Not Resolved]

NARRATIVE: CASE EVENT DATE: 20160406
